FAERS Safety Report 5631832-X (Version None)
Quarter: 2008Q1

REPORT INFORMATION
  Report Type: 
  Country: None (occurrence: None)
  Receive Date: 20080220
  Receipt Date: 20080208
  Transmission Date: 20080703
  Serious: Yes (Hospitalization)
  Sender: FDA-Public Use
  Company Number: PHBS2008NL02266

PATIENT
  Age: 42 Year
  Sex: Female

DRUGS (1)
  1. PAMIDRONATE DISODIUM [Suspect]
     Indication: OSTEOGENESIS IMPERFECTA
     Route: 042

REACTIONS (6)
  - BONE DEBRIDEMENT [None]
  - BONE DISORDER [None]
  - JAW FRACTURE [None]
  - JAW OPERATION [None]
  - OSTEONECROSIS [None]
  - PAIN IN JAW [None]
